FAERS Safety Report 10825635 (Version 1)
Quarter: 2015Q1

REPORT INFORMATION
  Report Type: Report from Study
  Country: US (occurrence: US)
  Receive Date: 20150219
  Receipt Date: 20150219
  Transmission Date: 20150721
  Serious: No
  Sender: FDA-Public Use
  Company Number: US-ABBVIE-14K-163-1317089-00

PATIENT
  Age: 30 Year
  Sex: Female
  Weight: 63.56 kg

DRUGS (5)
  1. HUMIRA [Suspect]
     Active Substance: ADALIMUMAB
     Route: 065
     Dates: start: 201410, end: 201410
  2. HUMIRA [Suspect]
     Active Substance: ADALIMUMAB
     Dosage: DAY 8
     Route: 065
     Dates: start: 201410
  3. HUMIRA [Suspect]
     Active Substance: ADALIMUMAB
     Dosage: DAY 8
     Route: 065
     Dates: start: 2012, end: 201408
  4. HUMIRA [Suspect]
     Active Substance: ADALIMUMAB
     Indication: PSORIASIS
     Route: 065
     Dates: start: 2012, end: 2012
  5. CLOBEX [Concomitant]
     Active Substance: CLOBETASOL PROPIONATE
     Indication: PRODUCT USED FOR UNKNOWN INDICATION
     Dosage: SPRAY

REACTIONS (1)
  - Psoriasis [Recovering/Resolving]

NARRATIVE: CASE EVENT DATE: 201409
